FAERS Safety Report 21574293 (Version 2)
Quarter: 2022Q4

REPORT INFORMATION
  Report Type: Spontaneous
  Country: DE (occurrence: DE)
  Receive Date: 20221109
  Receipt Date: 20221127
  Transmission Date: 20230112
  Serious: Yes (Hospitalization, Other)
  Sender: FDA-Public Use
  Company Number: DE-TEVA-2022-DE-2824313

PATIENT
  Age: 4 Decade
  Sex: Female

DRUGS (4)
  1. CYCLOSPORINE [Suspect]
     Active Substance: CYCLOSPORINE
     Indication: Multiple sclerosis
     Route: 065
  2. CYCLOSPORINE [Suspect]
     Active Substance: CYCLOSPORINE
     Indication: Uveitis
  3. OZURDEX [Suspect]
     Active Substance: DEXAMETHASONE
     Indication: Multiple sclerosis
     Dosage: ADDITIONAL INFO: ROUTE: {INTRAVITREAL}
     Route: 050
  4. OZURDEX [Suspect]
     Active Substance: DEXAMETHASONE
     Indication: Uveitis

REACTIONS (2)
  - Drug ineffective [Unknown]
  - Cataract [Unknown]
